FAERS Safety Report 7214121-1 (Version None)
Quarter: 2010Q4

REPORT INFORMATION
  Report Type: 
  Country: None (occurrence: None)
  Receive Date: 20101126
  Receipt Date: 20091111
  Transmission Date: 20110411
  Serious: Yes (Other)
  Sender: FDA-Public Use
  Company Number: WAES 0908USA01684

PATIENT
  Age: 69 Year
  Sex: Female
  Weight: 56.6996 kg

DRUGS (2)
  1. FOSAMAX [Suspect]
     Indication: OSTEOPOROSIS
     Dosage: 70 MG/WKY/PO
     Route: 048
     Dates: end: 20070401
  2. ZOCOR [Concomitant]

REACTIONS (29)
  - ABSCESS [None]
  - ABSCESS JAW [None]
  - ACTINOMYCOSIS [None]
  - ANIMAL BITE [None]
  - AORTIC ANEURYSM [None]
  - ASTHMA [None]
  - BACK PAIN [None]
  - BUNDLE BRANCH BLOCK LEFT [None]
  - CAROTID BRUIT [None]
  - CELLULITIS [None]
  - DENTAL CARIES [None]
  - DIARRHOEA [None]
  - EMPHYSEMA [None]
  - FIBROCYSTIC BREAST DISEASE [None]
  - HYPERLIPIDAEMIA [None]
  - HYPERTENSION [None]
  - LUNG NEOPLASM [None]
  - OSTEOARTHRITIS [None]
  - OSTEOMYELITIS [None]
  - OSTEONECROSIS OF JAW [None]
  - PEPTIC ULCER [None]
  - RAYNAUD'S PHENOMENON [None]
  - RESPIRATORY TRACT INFECTION [None]
  - ROSACEA [None]
  - SINUSITIS [None]
  - TOOTH DISORDER [None]
  - TRIGGER FINGER [None]
  - VERTIGO [None]
  - WEIGHT DECREASED [None]
